FAERS Safety Report 7557809-5 (Version None)
Quarter: 2011Q2

REPORT INFORMATION
  Report Type: 
  Country: None (occurrence: None)
  Receive Date: 20110620
  Receipt Date: 20110610
  Transmission Date: 20111010
  Serious: Yes (Other)
  Sender: FDA-Public Use
  Company Number: US-ASTRAZENECA-2011SE35975

PATIENT
  Age: 61 Year
  Sex: Female

DRUGS (1)
  1. SEROQUEL [Suspect]
     Route: 048

REACTIONS (7)
  - INHALATION THERAPY [None]
  - MULTIPLE SCLEROSIS [None]
  - DIAPHRAGMATIC PARALYSIS [None]
  - DRUG DOSE OMISSION [None]
  - DISABILITY [None]
  - INSOMNIA [None]
  - VOCAL CORD PARALYSIS [None]
